FAERS Safety Report 22878689 (Version 2)
Quarter: 2024Q4

REPORT INFORMATION
  Report Type: Spontaneous
  Country: US (occurrence: US)
  Receive Date: 20230829
  Receipt Date: 20241104
  Transmission Date: 20250115
  Serious: No
  Sender: BIOGEN
  Company Number: US-BIOGEN-2023BI01221890

PATIENT
  Age: 59 Year
  Sex: Female

DRUGS (11)
  1. VUMERITY [Suspect]
     Active Substance: DIROXIMEL FUMARATE
     Indication: Multiple sclerosis
     Route: 050
     Dates: start: 20230815, end: 20230815
  2. ALBUTEROL [Concomitant]
     Active Substance: ALBUTEROL
     Route: 050
  3. ALPRAZOLAM [Concomitant]
     Active Substance: ALPRAZOLAM
     Route: 050
  4. BACLOFEN [Concomitant]
     Active Substance: BACLOFEN
     Route: 050
  5. ADDERALL [Concomitant]
     Active Substance: AMPHETAMINE ASPARTATE\AMPHETAMINE SULFATE\DEXTROAMPHETAMINE SACCHARATE\DEXTROAMPHETAMINE SULFATE
     Route: 050
  6. FLUTICASONE [Concomitant]
     Active Substance: FLUTICASONE
     Route: 050
  7. HYDROXYCHLOROQUINE [Concomitant]
     Active Substance: HYDROXYCHLOROQUINE
     Route: 050
  8. PREGABALIN [Concomitant]
     Active Substance: PREGABALIN
     Route: 050
  9. ROPINIROLE [Concomitant]
     Active Substance: ROPINIROLE
     Route: 050
  10. SYNTHROID [Concomitant]
     Active Substance: LEVOTHYROXINE SODIUM
     Route: 050
  11. SUCRALFATE [Concomitant]
     Active Substance: SUCRALFATE
     Route: 050

REACTIONS (10)
  - Dyspnoea [Unknown]
  - Wheezing [Unknown]
  - Somnolence [Unknown]
  - Speech disorder [Unknown]
  - Rales [Unknown]
  - Fatigue [Unknown]
  - Stress [Unknown]
  - Paraesthesia oral [Recovered/Resolved]
  - Flushing [Unknown]
  - Hypersensitivity [Recovered/Resolved]

NARRATIVE: CASE EVENT DATE: 20230815
